FAERS Safety Report 13380067 (Version 1)
Quarter: 2017Q1

REPORT INFORMATION
  Report Type: Report from Study
  Country: US (occurrence: US)
  Receive Date: 20170328
  Receipt Date: 20170328
  Transmission Date: 20170429
  Serious: Yes (Hospitalization)
  Sender: FDA-Public Use
  Company Number: US-B.I. PHARMACEUTICALS,INC./RIDGEFIELD-2017-BI-015335

PATIENT
  Sex: Female

DRUGS (1)
  1. OFEV [Suspect]
     Active Substance: NINTEDANIB
     Indication: IRON DEFICIENCY ANAEMIA
     Dosage: DAILY DOSE: USE AS DIRECTED BY PHYSICIAN
     Route: 048

REACTIONS (1)
  - Lung infection [Unknown]
